FAERS Safety Report 19900796 (Version 1)
Quarter: 2021Q3

REPORT INFORMATION
  Report Type: Spontaneous
  Country: US (occurrence: US)
  Receive Date: 20210930
  Receipt Date: 20210930
  Transmission Date: 20211014
  Serious: Yes (Hospitalization)
  Sender: FDA-Public Use
  Company Number: None

PATIENT
  Age: 62 Year
  Sex: Female
  Weight: 46.3 kg

DRUGS (4)
  1. LEUCOVORIN CALCIUM. [Suspect]
     Active Substance: LEUCOVORIN CALCIUM
     Dates: end: 20210819
  2. CAMPTOSAR [Suspect]
     Active Substance: IRINOTECAN HYDROCHLORIDE
     Dates: end: 20210819
  3. ELOXATIN [Suspect]
     Active Substance: OXALIPLATIN
     Dates: end: 20210819
  4. 5?FLUOROURACIL (5?FU) [Suspect]
     Active Substance: FLUOROURACIL
     Dates: end: 20210819

REACTIONS (22)
  - Abdominal pain [None]
  - Vomiting [None]
  - Fatigue [None]
  - Palpitations [None]
  - Joint swelling [None]
  - Speech disorder [None]
  - Anxiety [None]
  - Visual impairment [None]
  - Asthenia [None]
  - Dysuria [None]
  - Diarrhoea [None]
  - Nausea [None]
  - Constipation [None]
  - Weight decreased [None]
  - Dyspnoea [None]
  - Odynophagia [None]
  - Liver disorder [None]
  - Chest pain [None]
  - Cough [None]
  - Depression [None]
  - Incontinence [None]
  - Musculoskeletal stiffness [None]

NARRATIVE: CASE EVENT DATE: 20210913
